FAERS Safety Report 9255101 (Version 2)
Quarter: 2013Q2

REPORT INFORMATION
  Report Type: Spontaneous
  Country: JP (occurrence: None)
  Receive Date: 20130422
  Receipt Date: 20130610
  Transmission Date: 20140414
  Serious: Yes (Other)
  Sender: FDA-Public Use
  Company Number: SYM-2013-02763

PATIENT
  Age: 69 Year
  Sex: Female

DRUGS (1)
  1. HERBESSER R [Suspect]
     Indication: PRODUCT USED FOR UNKNOWN INDICATION
     Route: 048
     Dates: start: 20130322

REACTIONS (2)
  - Epistaxis [None]
  - Melaena [None]
